FAERS Safety Report 19148365 (Version 1)
Quarter: 2021Q2

REPORT INFORMATION
  Report Type: Report from Study
  Country: BE (occurrence: BE)
  Receive Date: 20210417
  Receipt Date: 20210417
  Transmission Date: 20210717
  Serious: Yes (Hospitalization)
  Sender: FDA-Public Use
  Company Number: BE-ROCHE-2795674

PATIENT
  Age: 66 Year
  Sex: Male
  Weight: 97 kg

DRUGS (3)
  1. PEMETREXED. [Suspect]
     Active Substance: PEMETREXED
     Indication: PLEURAL MESOTHELIOMA MALIGNANT
     Dosage: DATE OF MOST RECENT PEMETREXED ADMINISTERED PRIOR TO SAE ONSET: 16/FEB/2021
     Route: 042
     Dates: start: 20201124
  2. BEVACIZUMAB. [Suspect]
     Active Substance: BEVACIZUMAB
     Indication: PLEURAL MESOTHELIOMA MALIGNANT
     Dosage: MOST RECENT DATE OF BEVACIZUMAB ADMINISTERED PRIOR TO SAE ONSET: 16/FEB/2021
     Route: 042
     Dates: start: 20201124
  3. CARBOPLATIN. [Suspect]
     Active Substance: CARBOPLATIN
     Indication: PLEURAL MESOTHELIOMA MALIGNANT
     Dosage: MOST RECENT DATE OF CARBOPLATIN ADMINISTERED PRIOR TO SAE ONSET: 16/FEB/2021
     Route: 042
     Dates: start: 20201124

REACTIONS (1)
  - Anaemia [Recovered/Resolved]

NARRATIVE: CASE EVENT DATE: 20210302
